FAERS Safety Report 14769572 (Version 1)
Quarter: 2018Q2

REPORT INFORMATION
  Report Type: Spontaneous
  Country: AU (occurrence: AU)
  Receive Date: 20180417
  Receipt Date: 20180417
  Transmission Date: 20180711
  Serious: Yes (Other)
  Sender: FDA-Public Use
  Company Number: AU-PFIZER INC-2018148834

PATIENT
  Sex: Male

DRUGS (1)
  1. LYRICA [Suspect]
     Active Substance: PREGABALIN
     Indication: NEURALGIA
     Dosage: 300 MG, 1X/DAY

REACTIONS (5)
  - Parkinson^s disease [Unknown]
  - Product use issue [Unknown]
  - Tremor [Unknown]
  - Confusional state [Unknown]
  - Dizziness [Unknown]
